FAERS Safety Report 10074082 (Version 1)
Quarter: 2014Q2

REPORT INFORMATION
  Report Type: Spontaneous
  Country: FR (occurrence: FR)
  Receive Date: 20140413
  Receipt Date: 20140413
  Transmission Date: 20141212
  Serious: Yes (Disabling)
  Sender: FDA-Public Use
  Company Number: FR-MYLANLABS-2014S1007783

PATIENT
  Age: 43 Year
  Sex: Female

DRUGS (4)
  1. VALPROIC ACID [Suspect]
     Indication: FRONTAL LOBE EPILEPSY
     Route: 065
  2. CARBAMAZEPINE [Suspect]
     Indication: FRONTAL LOBE EPILEPSY
     Route: 065
  3. PHENOBARBITAL [Suspect]
     Indication: FRONTAL LOBE EPILEPSY
     Route: 065
  4. STEROGYL [Concomitant]
     Dosage: TOOK VERY OCCASIONALLY
     Route: 065

REACTIONS (3)
  - Radius fracture [Recovering/Resolving]
  - Vitamin D deficiency [Not Recovered/Not Resolved]
  - Osteopenia [Not Recovered/Not Resolved]
